FAERS Safety Report 10975714 (Version 3)
Quarter: 2015Q3

REPORT INFORMATION
  Report Type: Spontaneous
  Country: DE (occurrence: DE)
  Receive Date: 20150401
  Receipt Date: 20150922
  Transmission Date: 20151125
  Serious: Yes (Other)
  Sender: FDA-Public Use
  Company Number: PHHY2015DE032767

PATIENT
  Age: 75 Year
  Sex: Male

DRUGS (3)
  1. SIMVASTATIN. [Concomitant]
     Active Substance: SIMVASTATIN
     Indication: PRODUCT USED FOR UNKNOWN INDICATION
     Route: 065
  2. TASIGNA [Suspect]
     Active Substance: NILOTINIB
     Indication: CHRONIC MYELOID LEUKAEMIA
     Dosage: 2 DF, BID (2X2X200 MG DAILY)
     Route: 065
     Dates: start: 2012
  3. ZEBINIX [Concomitant]
     Active Substance: ESLICARBAZEPINE ACETATE
     Indication: MENINGIOMA
     Route: 065

REACTIONS (6)
  - Bladder cancer [Unknown]
  - Disease recurrence [Unknown]
  - Cystitis noninfective [Not Recovered/Not Resolved]
  - Second primary malignancy [Unknown]
  - Blood urine present [Not Recovered/Not Resolved]
  - Nephrolithiasis [Unknown]

NARRATIVE: CASE EVENT DATE: 2014
